FAERS Safety Report 6808201-X (Version None)
Quarter: 2010Q2

REPORT INFORMATION
  Report Type: 
  Country: None (occurrence: None)
  Receive Date: 20100629
  Receipt Date: 20090527
  Transmission Date: 20101027
  Serious: No
  Sender: FDA-Public Use
  Company Number: US-PFIZER INC-2009192519

PATIENT
  Sex: Female
  Weight: 79.4 kg

DRUGS (7)
  1. XANAX [Suspect]
     Indication: GENERALISED ANXIETY DISORDER
     Dosage: 0.75 MG, EVERY DAY;
  2. VITAMIN B-12 [Concomitant]
     Dosage: 1000 MG DALIY
  3. GEMFIBROZIL [Concomitant]
     Dosage: 600 MG DALIY
  4. LISINOPRIL [Concomitant]
     Dosage: 10 MG DALIY
  5. HYDROCHLOROTHIAZIDE [Concomitant]
     Dosage: UNK
  6. ATENOLOL [Concomitant]
     Dosage: UNK
  7. SIMVASTATIN [Concomitant]
     Dosage: 40 MG DALIY

REACTIONS (4)
  - ABDOMINAL DISCOMFORT [None]
  - EYES SUNKEN [None]
  - FEELING JITTERY [None]
  - WITHDRAWAL SYNDROME [None]
